FAERS Safety Report 5643208-X (Version None)
Quarter: 2008Q1

REPORT INFORMATION
  Report Type: 
  Country: None (occurrence: None)
  Receive Date: 20080228
  Receipt Date: 20080219
  Transmission Date: 20080703
  Serious: Yes (Hospitalization, Disabling)
  Sender: FDA-Public Use
  Company Number: GB-ASTRAZENECA-2008GB00314

PATIENT
  Age: 83 Year
  Sex: Female
  Weight: 65 kg

DRUGS (6)
  1. TAMOXIFEN [Suspect]
     Indication: BREAST CANCER
     Route: 048
     Dates: start: 20020101, end: 20080101
  2. CETIRIZINE HCL [Concomitant]
     Indication: HYPERSENSITIVITY
     Route: 048
  3. CLOTRIMAZOLE [Concomitant]
     Indication: SKIN INFECTION
     Dosage: 1% STRENGTH
     Route: 061
  4. FUCIDINE CAP [Concomitant]
     Indication: SKIN INFECTION
     Route: 061
  5. PRAXILENE [Concomitant]
     Indication: INTERMITTENT CLAUDICATION
     Route: 048
  6. RANITIDINE [Concomitant]
     Indication: GASTROOESOPHAGEAL REFLUX DISEASE
     Route: 048

REACTIONS (1)
  - VAGINAL PROLAPSE [None]
